FAERS Safety Report 7636709-6 (Version None)
Quarter: 2011Q3

REPORT INFORMATION
  Report Type: 
  Country: None (occurrence: None)
  Receive Date: 20110726
  Receipt Date: 20110720
  Transmission Date: 20111222
  Serious: Yes (Other)
  Sender: FDA-Public Use
  Company Number: US-AMGEN-USASP2011037234

PATIENT
  Age: 60 Year
  Sex: Female

DRUGS (2)
  1. RITUXIMAB [Concomitant]
     Indication: IDIOPATHIC THROMBOCYTOPENIC PURPURA
  2. NPLATE [Suspect]
     Indication: IDIOPATHIC THROMBOCYTOPENIC PURPURA
     Dates: start: 20110704

REACTIONS (5)
  - BLOOD LACTATE DEHYDROGENASE INCREASED [None]
  - LYMPHOPENIA [None]
  - BIOPSY BONE MARROW ABNORMAL [None]
  - FIBRIN D DIMER INCREASED [None]
  - BLOOD FIBRINOGEN INCREASED [None]
